FAERS Safety Report 8337043-1 (Version None)
Quarter: 2012Q2

REPORT INFORMATION
  Report Type: 
  Country: None (occurrence: None)
  Receive Date: 20120504
  Receipt Date: 20110812
  Transmission Date: 20120825
  Serious: No
  Sender: FDA-Public Use
  Company Number: US-TEVA-2011003360

PATIENT
  Sex: Male
  Weight: 79.904 kg

DRUGS (2)
  1. NUVIGIL [Suspect]
     Indication: FATIGUE
     Route: 048
  2. NUVIGIL [Suspect]
     Dosage: 250 MILLIGRAM;
     Route: 048
     Dates: start: 20110101, end: 20110101

REACTIONS (3)
  - ANXIETY [None]
  - PANIC ATTACK [None]
  - ASOCIAL BEHAVIOUR [None]
